FAERS Safety Report 8378399-3 (Version None)
Quarter: 2012Q2

REPORT INFORMATION
  Report Type: 
  Country: None (occurrence: None)
  Receive Date: 20120522
  Receipt Date: 20120517
  Transmission Date: 20120825
  Serious: Yes (Life-Threatening)
  Sender: FDA-Public Use
  Company Number: JP-CUBIST-2012S1000311

PATIENT
  Age: 70 Year
  Sex: Male
  Weight: 84 kg

DRUGS (14)
  1. FUROSEMIDE [Concomitant]
     Indication: HYPERTENSION
     Route: 048
     Dates: start: 20120224
  2. URSODIOL [Concomitant]
     Indication: HYPERBILIRUBINAEMIA
     Route: 048
     Dates: start: 20120130
  3. ATELEC [Concomitant]
     Indication: HYPERTENSION
     Dosage: DOSE UNIT:2 UNKNOWN
     Route: 048
     Dates: start: 20120305
  4. LANSOPRAZOLE [Concomitant]
     Indication: GASTRITIS PROPHYLAXIS
     Route: 048
     Dates: start: 20120203
  5. WARFARIN SODIUM [Concomitant]
     Indication: ANTICOAGULANT THERAPY
     Route: 048
     Dates: start: 20120221
  6. CALCIUM CARBONATE [Concomitant]
     Indication: PRODUCT USED FOR UNKNOWN INDICATION
     Route: 048
     Dates: start: 20120225
  7. CEFTRIAXONE SODIUM [Concomitant]
     Indication: PRODUCT USED FOR UNKNOWN INDICATION
     Route: 042
     Dates: start: 20120327, end: 20120329
  8. ZOSYN [Concomitant]
     Indication: PRODUCT USED FOR UNKNOWN INDICATION
     Route: 042
     Dates: start: 20120329, end: 20120330
  9. ASPIRIN [Concomitant]
     Indication: ANTICOAGULANT THERAPY
     Route: 048
     Dates: start: 20120221
  10. CLARITHROMYCIN [Concomitant]
     Indication: SPUTUM RETENTION
     Route: 048
     Dates: start: 20120229
  11. MUCODYNE [Concomitant]
     Indication: SPUTUM RETENTION
     Route: 048
     Dates: start: 20120206
  12. KREMEZIN [Concomitant]
     Indication: HYPERLIPIDAEMIA
     Route: 048
     Dates: start: 20120303
  13. CUBICIN [Suspect]
     Indication: DEVICE RELATED INFECTION
     Dosage: DAILY DOSAGE UNKNOWN
     Route: 042
     Dates: start: 20120329, end: 20120329
  14. AMBROXOL [Concomitant]
     Indication: SPUTUM RETENTION
     Route: 048
     Dates: start: 20120206

REACTIONS (1)
  - ANAPHYLACTIC SHOCK [None]
